FAERS Safety Report 7685313-2 (Version None)
Quarter: 2011Q3

REPORT INFORMATION
  Report Type: 
  Country: None (occurrence: None)
  Receive Date: 20110816
  Receipt Date: 20110809
  Transmission Date: 20111222
  Serious: Yes (Other)
  Sender: FDA-Public Use
  Company Number: SE-JNJFOC-20110802415

PATIENT
  Age: 60 Year
  Sex: Male

DRUGS (6)
  1. OXYCONTIN [Concomitant]
     Route: 065
  2. OXINORM [Concomitant]
     Route: 065
  3. OXINORM [Concomitant]
     Route: 065
  4. CITALOPRAM HYDROBROMIDE [Concomitant]
     Indication: DEPRESSION
     Route: 065
     Dates: start: 20101201, end: 20110522
  5. OXYCONTIN [Concomitant]
     Route: 065
  6. TAPENTADOL [Suspect]
     Indication: BACK PAIN
     Route: 048
     Dates: start: 20110318, end: 20110319

REACTIONS (3)
  - APATHY [None]
  - ASTHENIA [None]
  - DEPRESSION [None]
